FAERS Safety Report 18375013 (Version 4)
Quarter: 2021Q3

REPORT INFORMATION
  Report Type: Report from Study
  Country: US (occurrence: US)
  Receive Date: 20201013
  Receipt Date: 20210728
  Transmission Date: 20211014
  Serious: Yes (Other)
  Sender: FDA-Public Use
  Company Number: US-SHIRE-US202027694

PATIENT
  Age: 69 Year
  Sex: Male
  Weight: 59 kg

DRUGS (29)
  1. TEDUGLUTIDE [Suspect]
     Active Substance: TEDUGLUTIDE
     Dosage: 0.328 MILLILITER
     Route: 065
  2. ALLEGRA ALLERGY [Concomitant]
     Active Substance: FEXOFENADINE HYDROCHLORIDE
  3. TEDUGLUTIDE [Suspect]
     Active Substance: TEDUGLUTIDE
     Dosage: 0.328 MILLILITER
     Route: 065
  4. METFORMIN [Concomitant]
     Active Substance: METFORMIN HYDROCHLORIDE
  5. HUMERA [Concomitant]
     Active Substance: ADALIMUMAB
  6. PANTOPRAZOLE SODIUM. [Concomitant]
     Active Substance: PANTOPRAZOLE SODIUM
  7. AZATHIOPRINE. [Concomitant]
     Active Substance: AZATHIOPRINE
  8. MUCINEX [Concomitant]
     Active Substance: GUAIFENESIN
  9. TEDUGLUTIDE [Suspect]
     Active Substance: TEDUGLUTIDE
     Indication: SHORT-BOWEL SYNDROME
     Dosage: 0.328 UNK, QD
     Route: 050
     Dates: start: 20200417
  10. PLAVIX [Concomitant]
     Active Substance: CLOPIDOGREL BISULFATE
  11. VITAMIN B12 [Concomitant]
     Active Substance: CYANOCOBALAMIN
  12. TEDUGLUTIDE [Suspect]
     Active Substance: TEDUGLUTIDE
     Indication: SHORT-BOWEL SYNDROME
     Dosage: 0.328 UNK, QD
     Route: 050
     Dates: start: 20200417
  13. TEDUGLUTIDE [Suspect]
     Active Substance: TEDUGLUTIDE
     Indication: SHORT-BOWEL SYNDROME
     Dosage: 0.328 UNK, QD
     Route: 050
     Dates: start: 20200417
  14. OPIUM TINCTURE [Concomitant]
     Active Substance: MORPHINE
  15. TEDUGLUTIDE [Suspect]
     Active Substance: TEDUGLUTIDE
     Indication: SHORT-BOWEL SYNDROME
     Dosage: 0.328 UNK, QD
     Route: 058
     Dates: start: 20200417
  16. TEDUGLUTIDE [Suspect]
     Active Substance: TEDUGLUTIDE
     Indication: SHORT-BOWEL SYNDROME
     Dosage: 0.328 UNK, QD
     Route: 058
     Dates: start: 20200417
  17. METRONIDAZOLE. [Concomitant]
     Active Substance: METRONIDAZOLE
  18. VIBERZI [Concomitant]
     Active Substance: ELUXADOLINE
  19. TEDUGLUTIDE [Suspect]
     Active Substance: TEDUGLUTIDE
     Indication: SHORT-BOWEL SYNDROME
     Dosage: 0.328 UNK, QD
     Route: 058
     Dates: start: 20200417
  20. TEDUGLUTIDE [Suspect]
     Active Substance: TEDUGLUTIDE
     Dosage: 0.328 MILLILITER
     Route: 065
  21. GABAPENTIN. [Concomitant]
     Active Substance: GABAPENTIN
  22. BUPRION [Concomitant]
     Active Substance: BUPROPION HYDROCHLORIDE
  23. SINGULAIR [Concomitant]
     Active Substance: MONTELUKAST SODIUM
  24. TEDUGLUTIDE [Suspect]
     Active Substance: TEDUGLUTIDE
     Indication: SHORT-BOWEL SYNDROME
     Dosage: 0.328 UNK, QD
     Route: 050
     Dates: start: 20200417
  25. TEDUGLUTIDE [Suspect]
     Active Substance: TEDUGLUTIDE
     Dosage: 0.328 MILLILITER
     Route: 065
  26. VITAMIN D3 [Concomitant]
     Active Substance: CHOLECALCIFEROL
  27. TEDUGLUTIDE [Suspect]
     Active Substance: TEDUGLUTIDE
     Indication: SHORT-BOWEL SYNDROME
     Dosage: 0.328 UNK, QD
     Route: 058
     Dates: start: 20200417
  28. PREDNISONE. [Concomitant]
     Active Substance: PREDNISONE
  29. AMITRIPTYLIN [Concomitant]
     Active Substance: AMITRIPTYLINE

REACTIONS (7)
  - Gastrointestinal disorder [Unknown]
  - Procedural site reaction [Unknown]
  - Weight decreased [Unknown]
  - Unevaluable event [Unknown]
  - Product dose omission issue [Recovered/Resolved]
  - Limb mass [Recovered/Resolved]
  - Product reconstitution quality issue [Unknown]

NARRATIVE: CASE EVENT DATE: 20201008
